FAERS Safety Report 18049872 (Version 2)
Quarter: 2020Q3

REPORT INFORMATION
  Report Type: Spontaneous
  Country: NZ (occurrence: NZ)
  Receive Date: 20200721
  Receipt Date: 20200803
  Transmission Date: 20201103
  Serious: Yes (Other)
  Sender: FDA-Public Use
  Company Number: NZ-BEH-2020120118

PATIENT
  Age: 21 Year
  Sex: Female

DRUGS (2)
  1. RHOPHYLAC [Suspect]
     Active Substance: HUMAN RHO(D) IMMUNE GLOBULIN
     Indication: RHESUS ANTIBODIES NEGATIVE
     Dosage: 625 INTERNATIONAL UNIT, TOT
     Route: 065
     Dates: start: 20200706, end: 20200706
  2. RHOPHYLAC [Suspect]
     Active Substance: HUMAN RHO(D) IMMUNE GLOBULIN
     Indication: RHESUS ANTIBODIES NEGATIVE
     Dosage: 625 INTERNATIONAL UNIT, TOT
     Route: 065
     Dates: start: 20200706, end: 20200706

REACTIONS (2)
  - Accidental underdose [Unknown]
  - Circumstance or information capable of leading to medication error [Unknown]

NARRATIVE: CASE EVENT DATE: 20200707
